FAERS Safety Report 10047442 (Version 1)
Quarter: 2014Q1

REPORT INFORMATION
  Report Type: Not Available
  Country: IE (occurrence: IE)
  Receive Date: 20140331
  Receipt Date: 20140331
  Transmission Date: 20141002
  Serious: Yes (Other)
  Sender: FDA-Public Use
  Company Number: IE-ASTELLAS-2014EU002607

PATIENT
  Age: 66 Year
  Sex: Female

DRUGS (4)
  1. BETMIGA [Suspect]
     Indication: HYPERTONIC BLADDER
     Dosage: 50 MG, UNKNOWN/D
     Route: 048
     Dates: start: 20131130
  2. ARCOXIA [Concomitant]
     Indication: ARTHRITIS
     Dosage: 90 MG, UID/QD
     Route: 048
  3. COZAAR [Concomitant]
     Indication: BLOOD PRESSURE
     Dosage: 100 MG, UNKNOWN/D
     Route: 048
  4. NU-SEALS [Concomitant]
     Indication: BLOOD PRESSURE
     Dosage: 75 MG, UNKNOWN/D
     Route: 048

REACTIONS (2)
  - Lip oedema [Not Recovered/Not Resolved]
  - Mouth ulceration [Not Recovered/Not Resolved]
